FAERS Safety Report 4676323-8 (Version None)
Quarter: 2005Q2

REPORT INFORMATION
  Report Type: 
  Country: None (occurrence: None)
  Receive Date: 20050527
  Receipt Date: 20050222
  Transmission Date: 20051028
  Serious: No
  Sender: FDA-Public Use
  Company Number: US-GLAXOSMITHKLINE-A0546734A

PATIENT
  Age: 13 Year
  Sex: Female

DRUGS (3)
  1. WELLBUTRIN XL [Suspect]
     Dosage: 300MG PER DAY
     Route: 048
     Dates: start: 20040401
  2. NEURONTIN [Concomitant]
  3. TOPAMAX [Concomitant]

REACTIONS (2)
  - HEADACHE [None]
  - RHEUMATOID FACTOR POSITIVE [None]
